FAERS Safety Report 4320002-3 (Version None)
Quarter: 2004Q1

REPORT INFORMATION
  Report Type: 
  Country: None (occurrence: None)
  Receive Date: 20040319
  Receipt Date: 20040311
  Transmission Date: 20041129
  Serious: Yes (Other)
  Sender: FDA-Public Use
  Company Number: WAES 0403USA01221

PATIENT
  Age: 73 Year
  Sex: Female

DRUGS (5)
  1. ALFACALCIDOL [Suspect]
  2. AMLODIPINE BESYLATE [Suspect]
  3. DOXAZOSIN MESYLATE [Suspect]
  4. FLUNITRAZEPAM [Suspect]
  5. ZOCOR [Suspect]
     Route: 048

REACTIONS (4)
  - ASCITES [None]
  - INTESTINAL PERFORATION [None]
  - JEJUNITIS [None]
  - PERITONITIS [None]
